FAERS Safety Report 10070872 (Version 1)
Quarter: 2014Q2

REPORT INFORMATION
  Report Type: Spontaneous
  Country: US (occurrence: US)
  Receive Date: 20140410
  Receipt Date: 20140410
  Transmission Date: 20141212
  Serious: Yes (Death)
  Sender: FDA-Public Use
  Company Number: PHHY2014US042919

PATIENT
  Age: 68 Year
  Sex: Female

DRUGS (3)
  1. TERBINAFINE [Suspect]
     Indication: FUNGAL INFECTION
  2. POSACONAZOLE [Suspect]
     Indication: SINUSITIS
  3. AMPHOTERICIN [Suspect]
     Indication: FUNGAL INFECTION

REACTIONS (2)
  - Fusarium infection [Fatal]
  - Drug ineffective [Unknown]
